FAERS Safety Report 12287561 (Version 4)
Quarter: 2016Q2

REPORT INFORMATION
  Report Type: Spontaneous
  Country: BR (occurrence: BR)
  Receive Date: 20160420
  Receipt Date: 20160616
  Transmission Date: 20160815
  Serious: Yes (Hospitalization, Other)
  Sender: FDA-Public Use
  Company Number: BR-ALEXION PHARMACEUTICALS INC.-A201602518

PATIENT
  Age: 3 Day
  Sex: Female
  Weight: 3.25 kg

DRUGS (3)
  1. SEBELIPASE ALFA [Suspect]
     Active Substance: SEBELIPASE ALFA
     Indication: LYSOSOMAL ACID LIPASE DEFICIENCY
     Dosage: 3 MG/KG, QW
     Route: 042
     Dates: start: 20160307, end: 20160314
  2. SEBELIPASE ALFA [Suspect]
     Active Substance: SEBELIPASE ALFA
     Dosage: 4 MG/KG, UNK
     Route: 042
     Dates: start: 20160314
  3. SEBELIPASE ALFA [Suspect]
     Active Substance: SEBELIPASE ALFA
     Dosage: 20 MG, UNK
     Route: 042
     Dates: start: 20160318

REACTIONS (9)
  - Drug ineffective [Not Recovered/Not Resolved]
  - Infantile vomiting [Not Recovered/Not Resolved]
  - Incorrect dose administered [Unknown]
  - Asthenia [Not Recovered/Not Resolved]
  - Abdominal distension [Not Recovered/Not Resolved]
  - Weight decrease neonatal [Not Recovered/Not Resolved]
  - Dry mouth [Unknown]
  - Abdominal pain [Not Recovered/Not Resolved]
  - Poor weight gain neonatal [Unknown]

NARRATIVE: CASE EVENT DATE: 20160307
